FAERS Safety Report 9731945 (Version 1)
Quarter: 2013Q4

REPORT INFORMATION
  Report Type: Spontaneous
  Country: US (occurrence: US)
  Receive Date: 20131204
  Receipt Date: 20131204
  Transmission Date: 20140711
  Serious: Yes (Hospitalization)
  Sender: FDA-Public Use
  Company Number: US-ASTELLAS-2013US012552

PATIENT
  Age: 47 Year
  Sex: Male

DRUGS (7)
  1. PROGRAF [Suspect]
     Indication: RENAL TRANSPLANT
     Dosage: 2 MG, BID
     Route: 048
  2. PROGRAF [Suspect]
     Dosage: 5 MG, BID
     Route: 048
  3. SIMVASTATIN [Concomitant]
     Indication: HYPERTENSION
     Dosage: UNK
     Route: 065
  4. NISOLDIPINE [Concomitant]
     Indication: HYPERTENSION
     Dosage: 30 MG, UNKNOWN/D
     Route: 065
  5. CELLCEPT                           /01275102/ [Concomitant]
     Indication: RENAL TRANSPLANT
     Dosage: 250 MG, UNKNOWN/D
     Route: 065
  6. PREDNISONE [Concomitant]
     Indication: RENAL TRANSPLANT
     Dosage: 5 MG, UNKNOWN/D
     Route: 065
  7. SENSIPAR [Concomitant]
     Indication: DIALYSIS
     Dosage: 30 MG, UNKNOWN/D
     Route: 065

REACTIONS (1)
  - Investigation [Recovering/Resolving]
